FAERS Safety Report 8486482 (Version 4)
Quarter: 2013Q2

REPORT INFORMATION
  Report Type: Spontaneous
  Country: US (occurrence: US)
  Receive Date: 20120402
  Receipt Date: 20130416
  Transmission Date: 20140414
  Serious: Yes (Other)
  Sender: FDA-Public Use
  Company Number: US-PFIZER INC-2012078494

PATIENT
  Age: 50 Year
  Sex: Female

DRUGS (2)
  1. NEURONTIN [Suspect]
     Indication: NEUROPATHY PERIPHERAL
     Dosage: 400 MG, 3X/DAY
     Route: 048
     Dates: start: 2010
  2. ZOLOFT [Suspect]
     Dosage: 100 MG, 3X/DAY
     Route: 048

REACTIONS (2)
  - Amnesia [Unknown]
  - Gait disturbance [Unknown]
